FAERS Safety Report 11062244 (Version 2)
Quarter: 2015Q2

REPORT INFORMATION
  Report Type: Spontaneous
  Country: US (occurrence: US)
  Receive Date: 20150424
  Receipt Date: 20150615
  Transmission Date: 20150821
  Serious: Yes (Other)
  Sender: FDA-Public Use
  Company Number: US-PFIZER INC-2015135179

PATIENT
  Age: 79 Year
  Sex: Male

DRUGS (1)
  1. LYRICA [Suspect]
     Active Substance: PREGABALIN
     Dosage: UNK

REACTIONS (6)
  - Fall [Recovered/Resolved]
  - Rib fracture [Unknown]
  - Proctalgia [Unknown]
  - Dyskinesia [Unknown]
  - Asthenia [Unknown]
  - Dysgraphia [Unknown]
